FAERS Safety Report 9885513 (Version 1)
Quarter: 2014Q1

REPORT INFORMATION
  Report Type: Spontaneous
  Country: US (occurrence: US)
  Receive Date: 20140210
  Receipt Date: 20140210
  Transmission Date: 20141002
  Serious: No
  Sender: FDA-Public Use
  Company Number: US-PFIZER INC-2014033595

PATIENT
  Age: 3 Year
  Sex: Female
  Weight: 15.87 kg

DRUGS (1)
  1. ADVIL [Suspect]
     Dosage: UNK
     Dates: start: 20140204

REACTIONS (2)
  - Accidental exposure to product by child [Unknown]
  - Glossodynia [Unknown]
